FAERS Safety Report 24966381 (Version 2)
Quarter: 2025Q3

REPORT INFORMATION
  Report Type: Report from Study
  Country: IN (occurrence: IN)
  Receive Date: 20250213
  Receipt Date: 20250810
  Transmission Date: 20251021
  Serious: Yes (Other)
  Sender: ALEXION PHARMACEUTICALS
  Company Number: IN-AstraZeneca-CH-00804512A

PATIENT
  Sex: Male
  Weight: 61 kg

DRUGS (1)
  1. DURVALUMAB [Suspect]
     Active Substance: DURVALUMAB
     Indication: Small cell lung cancer extensive stage

REACTIONS (4)
  - Cerebrovascular accident [Unknown]
  - Nerve compression [Unknown]
  - Seizure [Unknown]
  - Thrombosis [Unknown]
